FAERS Safety Report 6164640-4 (Version None)
Quarter: 2009Q2

REPORT INFORMATION
  Report Type: 
  Country: None (occurrence: None)
  Receive Date: 20090423
  Receipt Date: 20090420
  Transmission Date: 20091009
  Serious: No
  Sender: FDA-Public Use
  Company Number: US-B.I. PHARMACEUTICALS,INC./RIDGEFIELD-2008-BP-15451BP

PATIENT
  Age: 42 Year
  Sex: Female

DRUGS (12)
  1. SPIRIVA [Suspect]
     Indication: ASTHMA
     Dosage: 18MCG
     Route: 055
     Dates: start: 20070101
  2. PREDNISONE [Concomitant]
  3. OMEPRAZOLE [Concomitant]
  4. FAMOTIDINE [Concomitant]
  5. PULMICORT-100 [Concomitant]
  6. ADVAIR HFA [Concomitant]
  7. WELLBUTRIN [Concomitant]
  8. COUMADIN [Concomitant]
  9. SINGULAIR [Concomitant]
  10. TEMAZEPAM [Concomitant]
  11. AZOPT [Concomitant]
  12. LUMIGAN [Concomitant]

REACTIONS (2)
  - ASTHMA [None]
  - OBSTRUCTIVE AIRWAYS DISORDER [None]
